FAERS Safety Report 20393238 (Version 1)
Quarter: 2022Q1

REPORT INFORMATION
  Report Type: Spontaneous
  Country: CA (occurrence: CA)
  Receive Date: 20220128
  Receipt Date: 20220128
  Transmission Date: 20220424
  Serious: Yes (Hospitalization)
  Sender: FDA-Public Use
  Company Number: CA-TEVA-2022-CA-2002103

PATIENT
  Age: 3 Day
  Sex: Male
  Weight: 3 kg

DRUGS (2)
  1. TRAZODONE [Suspect]
     Active Substance: TRAZODONE HYDROCHLORIDE
     Indication: Anxiety disorder
     Route: 064
  2. LITHIUM [Suspect]
     Active Substance: LITHIUM
     Indication: Bipolar disorder
     Dosage: 1045 MILLIGRAM DAILY;
     Route: 064

REACTIONS (10)
  - Cyanosis [Unknown]
  - Discomfort [Unknown]
  - Drug withdrawal syndrome neonatal [Unknown]
  - Foetal exposure during pregnancy [Unknown]
  - Hypotonia neonatal [Unknown]
  - Infant irritability [Unknown]
  - Neonatal hypoxia [Unknown]
  - Neonatal seizure [Unknown]
  - Psychomotor hyperactivity [Unknown]
  - Staring [Unknown]
